FAERS Safety Report 4688846-6 (Version None)
Quarter: 2005Q2

REPORT INFORMATION
  Report Type: 
  Country: None (occurrence: None)
  Receive Date: 20050613
  Receipt Date: 20050530
  Transmission Date: 20051028
  Serious: Yes (Hospitalization)
  Sender: FDA-Public Use
  Company Number: GR-GLAXOSMITHKLINE-B0383513A

PATIENT
  Age: 3 Year
  Sex: Female

DRUGS (1)
  1. AUGMENTIN '125' [Suspect]
     Indication: LYMPHADENITIS
     Route: 048
     Dates: start: 20050428, end: 20050505

REACTIONS (2)
  - HENOCH-SCHONLEIN PURPURA [None]
  - PURPURA [None]
